FAERS Safety Report 16058434 (Version 1)
Quarter: 2019Q1

REPORT INFORMATION
  Report Type: Spontaneous
  Country: AU (occurrence: AU)
  Receive Date: 20190311
  Receipt Date: 20190311
  Transmission Date: 20190418
  Serious: Yes (Death, Life-Threatening)
  Sender: FDA-Public Use
  Company Number: AU-COVIS PHARMA B.V.-2019COV00089

PATIENT

DRUGS (1)
  1. DIGOXIN. [Suspect]
     Active Substance: DIGOXIN
     Route: 065

REACTIONS (3)
  - Brain injury [Fatal]
  - Toxicity to various agents [Fatal]
  - Cardiac arrest [Unknown]
